FAERS Safety Report 8278315 (Version 4)
Quarter: 2016Q3

REPORT INFORMATION
  Report Type: Spontaneous
  Country: US (occurrence: US)
  Receive Date: 20111207
  Receipt Date: 20160803
  Transmission Date: 20161109
  Serious: Yes (Life-Threatening, Hospitalization, Other)
  Sender: FDA-Public Use
  Company Number: US-GLAXOSMITHKLINE-A0927761A

PATIENT
  Age: 35 Year
  Sex: Female
  Weight: 96.2 kg

DRUGS (5)
  1. FLOLAN [Suspect]
     Active Substance: EPOPROSTENOL SODIUM
     Dosage: UNK
     Dates: start: 20100512
  2. OPSUMIT [Concomitant]
     Active Substance: MACITENTAN
  3. FLOLAN [Suspect]
     Active Substance: EPOPROSTENOL SODIUM
     Indication: PULMONARY ARTERIAL HYPERTENSION
     Dosage: 62 NG/KG/MIN CO (CONCENTRATION 90,000 NG/ML, PUMP RATE 89 ML/DAY, VIAL STRENGTH 1.5 MG
  4. FLOLAN [Suspect]
     Active Substance: EPOPROSTENOL SODIUM
     Indication: PULMONARY ARTERIAL HYPERTENSION
     Route: 042
     Dates: start: 20100512
  5. FLOLAN [Suspect]
     Active Substance: EPOPROSTENOL SODIUM
     Dosage: UNK, CO
     Dates: start: 20150706

REACTIONS (16)
  - Therapy cessation [Unknown]
  - Complication associated with device [Unknown]
  - Nausea [Unknown]
  - Haemoptysis [Unknown]
  - Dizziness [Unknown]
  - Asthenia [Unknown]
  - Dyspnoea [Recovered/Resolved]
  - Malaise [Unknown]
  - Device infusion issue [Unknown]
  - Drug administration error [Unknown]
  - Catheter management [Unknown]
  - Central venous catheter removal [Unknown]
  - Central venous catheterisation [Unknown]
  - Lethargy [Unknown]
  - Pneumonia [Unknown]
  - Thrombosis in device [Unknown]

NARRATIVE: CASE EVENT DATE: 20111129
